FAERS Safety Report 7895960-0 (Version None)
Quarter: 2011Q4

REPORT INFORMATION
  Report Type: 
  Country: None (occurrence: None)
  Receive Date: 20111106
  Receipt Date: 20110901
  Transmission Date: 20120403
  Serious: No
  Sender: FDA-Public Use
  Company Number: US-AMGEN-USASP2011044984

PATIENT
  Age: 54 Year
  Sex: Female

DRUGS (1)
  1. ENBREL [Suspect]
     Indication: RHEUMATOID ARTHRITIS
     Dosage: 50 MG, QWK
     Dates: start: 20110301

REACTIONS (6)
  - DYSURIA [None]
  - LACRIMATION INCREASED [None]
  - VISUAL IMPAIRMENT [None]
  - HEADACHE [None]
  - RECTAL HAEMORRHAGE [None]
  - MOOD SWINGS [None]
